FAERS Safety Report 5576154-0 (Version None)
Quarter: 2007Q4

REPORT INFORMATION
  Report Type: 
  Country: None (occurrence: None)
  Receive Date: 20071228
  Receipt Date: 20070816
  Transmission Date: 20080405
  Serious: No
  Sender: FDA-Public Use
  Company Number: US-BAYER-200711980BCC

PATIENT
  Age: 69 Year
  Sex: Female
  Weight: 52 kg

DRUGS (3)
  1. ALEVE [Suspect]
     Indication: PAIN
     Route: 048
     Dates: start: 20070101
  2. ASPIRIN [Suspect]
     Indication: ISCHAEMIC HEART DISEASE PROPHYLAXIS
     Route: 048
  3. FOSAMAX [Concomitant]

REACTIONS (1)
  - CONSTIPATION [None]
